FAERS Safety Report 18570337 (Version 1)
Quarter: 2020Q4

REPORT INFORMATION
  Report Type: Spontaneous
  Country: BR (occurrence: BR)
  Receive Date: 20201202
  Receipt Date: 20201202
  Transmission Date: 20210114
  Serious: Yes (Other)
  Sender: FDA-Public Use
  Company Number: NVSC2020BR317421

PATIENT
  Age: 54 Year
  Sex: Male

DRUGS (7)
  1. HYDROXYCHLOROQUINE [Suspect]
     Active Substance: HYDROXYCHLOROQUINE
     Dosage: RE-EXPOSURE
     Route: 065
     Dates: start: 202004
  2. HYDROXYCHLOROQUINE [Suspect]
     Active Substance: HYDROXYCHLOROQUINE
     Dosage: 400 MG, BID
     Route: 065
     Dates: start: 202002
  3. TRAMETINIB [Suspect]
     Active Substance: TRAMETINIB
     Dosage: RE-EXPOSURE
     Route: 065
     Dates: start: 202004
  4. HYDROXYCHLOROQUINE [Suspect]
     Active Substance: HYDROXYCHLOROQUINE
     Dosage: 400 MG, QD
     Route: 065
  5. HYDROXYCHLOROQUINE [Suspect]
     Active Substance: HYDROXYCHLOROQUINE
     Dosage: 400 MG, TID
     Route: 065
     Dates: start: 202003
  6. HYDROXYCHLOROQUINE [Suspect]
     Active Substance: HYDROXYCHLOROQUINE
     Indication: ADENOCARCINOMA PANCREAS
     Dosage: 600 MG, BID
     Route: 065
     Dates: start: 202001
  7. TRAMETINIB [Suspect]
     Active Substance: TRAMETINIB
     Indication: ADENOCARCINOMA PANCREAS
     Dosage: 2 MG, QD
     Route: 065
     Dates: start: 202001

REACTIONS (6)
  - Malignant neoplasm progression [Unknown]
  - Rash papular [Unknown]
  - Product use in unapproved indication [Unknown]
  - Adenocarcinoma pancreas [Unknown]
  - Rash pustular [Unknown]
  - Therapy partial responder [Unknown]

NARRATIVE: CASE EVENT DATE: 202005
